FAERS Safety Report 6239129-4 (Version None)
Quarter: 2009Q2

REPORT INFORMATION
  Report Type: 
  Country: None (occurrence: None)
  Receive Date: 20090618
  Receipt Date: 20090618
  Transmission Date: 20091009
  Serious: No
  Sender: FDA-Public Use
  Company Number: None

PATIENT
  Age: 27 Year
  Sex: Female

DRUGS (1)
  1. ZICAM RAPID MELTS [Suspect]
     Indication: NASOPHARYNGITIS
     Dates: start: 20061227, end: 20061228

REACTIONS (2)
  - ANOSMIA [None]
  - HYPOGEUSIA [None]
